FAERS Safety Report 6160352-1 (Version None)
Quarter: 2009Q2

REPORT INFORMATION
  Report Type: 
  Country: None (occurrence: None)
  Receive Date: 20090416
  Receipt Date: 20090408
  Transmission Date: 20091009
  Serious: Yes (Death, Other)
  Sender: FDA-Public Use
  Company Number: CLOF-1000499

PATIENT
  Age: 39 Year
  Sex: Male

DRUGS (1)
  1. CLOLAR [Suspect]
     Indication: ACUTE LYMPHOCYTIC LEUKAEMIA
     Dosage: 52 MG/M2, CYCLE 1, INTRAVENOUS
     Route: 042

REACTIONS (7)
  - ACUTE LYMPHOCYTIC LEUKAEMIA [None]
  - ASPERGILLOSIS [None]
  - BONE MARROW FAILURE [None]
  - DELAYED ENGRAFTMENT [None]
  - IMMUNOSUPPRESSION [None]
  - MALIGNANT NEOPLASM PROGRESSION [None]
  - STEM CELL TRANSPLANT [None]
